FAERS Safety Report 9697489 (Version 2)
Quarter: 2013Q4

REPORT INFORMATION
  Report Type: Report from Study
  Country: DE (occurrence: DE)
  Receive Date: 20131120
  Receipt Date: 20131120
  Transmission Date: 20140711
  Serious: Yes (Other)
  Sender: FDA-Public Use
  Company Number: PHHY2011DE118339

PATIENT
  Sex: Male

DRUGS (13)
  1. STI571 [Suspect]
     Indication: CHRONIC MYELOID LEUKAEMIA
     Dosage: 400 MG, DAILY
     Route: 048
     Dates: start: 20050629, end: 20091212
  2. ASS [Concomitant]
     Indication: PROPHYLAXIS
     Dosage: 1 PER DAY
     Dates: start: 200412
  3. ALLOPURINOL [Concomitant]
     Indication: PROPHYLAXIS
     Dosage: UNK UKN, UNK
     Dates: start: 200412, end: 20101110
  4. BELOC-ZOC MITE [Concomitant]
     Indication: HYPERTENSION
     Dosage: UNK UKN, UNK
     Dates: start: 200412, end: 20101013
  5. IMODIUM [Concomitant]
     Indication: DIARRHOEA
     Dosage: AS NEEDED
     Dates: start: 20080924
  6. CYTOBION [Concomitant]
     Indication: PROPHYLAXIS
     Dosage: 1000 MG, EVERY 3 MONTHS
     Dates: start: 20071114
  7. ERYTHROPOETIN [Concomitant]
     Dosage: 1000 IU, PER WEEK
     Dates: start: 20070913
  8. OFLOXACIN [Concomitant]
     Dosage: UNK UKN, UNK
     Dates: start: 20100522, end: 20100601
  9. CIPROFLOXACIN [Concomitant]
     Dosage: UNK UKN, UNK
     Dates: start: 20100521, end: 20100611
  10. TOREM [Concomitant]
     Indication: PROPHYLAXIS
     Dosage: UNK UKN, UNK
     Dates: start: 20101116
  11. CORVATON [Concomitant]
     Dosage: UNK UKN, UNK
     Dates: start: 20101014
  12. DIGIMERCK [Concomitant]
     Dosage: 0.1 MG PER DAY
     Dates: start: 20101116
  13. CARVEDIOL [Concomitant]
     Dosage: 25 MG, TWICE A DAY
     Dates: start: 20101014

REACTIONS (2)
  - Drug intolerance [Not Recovered/Not Resolved]
  - Diarrhoea [Not Recovered/Not Resolved]
